FAERS Safety Report 10411142 (Version 1)
Quarter: 2014Q2

REPORT INFORMATION
  Report Type: Spontaneous
  Country: US (occurrence: None)
  Receive Date: 20140514
  Receipt Date: 20140514
  Transmission Date: 20141212
  Serious: Yes (Other)
  Sender: FDA-Public Use
  Company Number: 112130

PATIENT
  Age: 55 Year
  Sex: Female

DRUGS (17)
  1. CIMZIA [Suspect]
     Indication: RHEUMATOID ARTHRITIS
     Route: 058
     Dates: start: 20091030, end: 20140115
  2. AMITRIPTYLINE [Concomitant]
  3. CLONAZEPAM [Concomitant]
  4. PROZAC [Concomitant]
  5. MINOCYCLINE [Concomitant]
  6. ENBREL [Concomitant]
  7. MIVITA MULTIVITAMIN [Concomitant]
  8. FISH OIL [Concomitant]
  9. LYSINE [Concomitant]
  10. VITAMIN B KOMPLEX [Concomitant]
  11. LEVOTHYROXIN KSA [Concomitant]
  12. PREDMOSPME [Concomitant]
  13. HYDROCHLOROTHIAZIDE W/TRIAMTERENE [Concomitant]
  14. EFFEXOR [Concomitant]
  15. FOLIC ACID [Concomitant]
  16. PROPRANOLOL [Concomitant]
  17. METHOTREXATE [Concomitant]

REACTIONS (2)
  - Drug ineffective [None]
  - Inappropriate schedule of drug administration [None]
